FAERS Safety Report 11442815 (Version 1)
Quarter: 2015Q3

REPORT INFORMATION
  Report Type: Spontaneous
  Country: US (occurrence: US)
  Receive Date: 20150901
  Receipt Date: 20150901
  Transmission Date: 20151125
  Serious: No
  Sender: FDA-Public Use
  Company Number: US-APOTEX-2015AP009002

PATIENT
  Sex: Female

DRUGS (1)
  1. AZITHROMYCIN [Suspect]
     Active Substance: AZITHROMYCIN ANHYDROUS
     Indication: EYE PAIN
     Dosage: 500 MG, UNK
     Route: 065
     Dates: start: 20140221

REACTIONS (9)
  - Fatigue [Unknown]
  - Headache [Recovered/Resolved]
  - Swelling [Unknown]
  - Muscle twitching [Not Recovered/Not Resolved]
  - Off label use [Unknown]
  - Xeroderma [Unknown]
  - Feeling abnormal [Not Recovered/Not Resolved]
  - Diarrhoea [Unknown]
  - Eye pain [Unknown]

NARRATIVE: CASE EVENT DATE: 201501
